FAERS Safety Report 7765891-5 (Version None)
Quarter: 2011Q3

REPORT INFORMATION
  Report Type: 
  Country: None (occurrence: None)
  Receive Date: 20110921
  Receipt Date: 20110909
  Transmission Date: 20111222
  Serious: Yes (Hospitalization)
  Sender: FDA-Public Use
  Company Number: DE-GENENTECH-298127

PATIENT
  Sex: Female

DRUGS (5)
  1. RITUXIMAB [Suspect]
     Dosage: 1000 MG, UNK
     Route: 065
     Dates: start: 20080114
  2. METHOTREXATE [Suspect]
     Indication: RHEUMATOID ARTHRITIS
     Dosage: UNK
     Route: 051
     Dates: start: 19900101, end: 20041201
  3. PREDNISOLONE [Concomitant]
     Indication: PRODUCT USED FOR UNKNOWN INDICATION
     Dosage: UNK
  4. METHOTREXATE [Suspect]
     Dosage: 20 MG, 1/WEEK
     Route: 051
     Dates: start: 20050101
  5. RITUXIMAB [Suspect]
     Indication: RHEUMATOID ARTHRITIS
     Dosage: UNK
     Route: 065
     Dates: start: 20070401, end: 20070501

REACTIONS (6)
  - PULMONARY TOXICITY [None]
  - SEPSIS [None]
  - SUBCUTANEOUS ABSCESS [None]
  - CARDIAC FAILURE [None]
  - RESPIRATORY FAILURE [None]
  - BACTERIAL INFECTION [None]
